FAERS Safety Report 7793347-2 (Version None)
Quarter: 2011Q4

REPORT INFORMATION
  Report Type: 
  Country: None (occurrence: None)
  Receive Date: 20111003
  Receipt Date: 20110624
  Transmission Date: 20120403
  Serious: No
  Sender: FDA-Public Use
  Company Number: US-BAYER-2011-055410

PATIENT
  Sex: Male

DRUGS (1)
  1. AVELOX [Suspect]
     Dosage: 400 MG, UNK
     Route: 048
     Dates: start: 20110601

REACTIONS (3)
  - SCAB [None]
  - PRURITUS [None]
  - INSOMNIA [None]
